FAERS Safety Report 11971503 (Version 3)
Quarter: 2016Q1

REPORT INFORMATION
  Report Type: Spontaneous
  Country: US (occurrence: US)
  Receive Date: 20160128
  Receipt Date: 20160212
  Transmission Date: 20160526
  Serious: Yes (Other)
  Sender: FDA-Public Use
  Company Number: US-PFIZER INC-2016041142

PATIENT
  Age: 77 Year
  Sex: Female

DRUGS (14)
  1. VITAMIN C [Concomitant]
     Active Substance: ASCORBIC ACID
     Dosage: 500 MG, 1X/DAY
     Route: 048
  2. JANTOVEN, COUMADIN [Concomitant]
     Dosage: 1 DF, EVERY TUESDAY, THURSDAY, AND SATURDAY
     Route: 048
  3. CALCIUM 500+D [Concomitant]
     Active Substance: CALCIUM\VITAMIN D
     Dosage: 1 DF, 2X/DAY
     Route: 048
  4. PACERONE [Suspect]
     Active Substance: AMIODARONE HYDROCHLORIDE
     Dosage: 200 MG, DAILY
     Route: 048
     Dates: start: 2008
  5. TENORMIN [Concomitant]
     Active Substance: ATENOLOL
     Dosage: 0.5 DF, 1X/DAY
     Route: 048
  6. ZYRTEC [Concomitant]
     Active Substance: CETIRIZINE HYDROCHLORIDE
     Dosage: 10 MG, 1X/DAY
     Route: 048
  7. VISINE [Concomitant]
     Active Substance: TETRAHYDROZOLINE HYDROCHLORIDE
     Dosage: 1 DROP INTO BOTH EYES, 2X/DAY
  8. LEVOXYL [Suspect]
     Active Substance: LEVOTHYROXINE SODIUM
     Dosage: 112 UG, 1X/DAY
     Route: 048
  9. LEVOTHROID [Suspect]
     Active Substance: LEVOTHYROXINE SODIUM
     Dosage: 112 UG, 1X/DAY
     Route: 048
  10. ESTRACE [Concomitant]
     Active Substance: ESTRADIOL
     Dosage: 0.5 G, 1X/DAY
     Route: 067
  11. JANTOVEN, COUMADIN [Concomitant]
     Dosage: 1.5 DF, EVERY MONDAY, WEDNESDAY, FRIDAY AND SUNDAY
     Route: 048
  12. SYNTHROID [Suspect]
     Active Substance: LEVOTHYROXINE SODIUM
     Dosage: 112 UG, 1X/DAY
     Route: 048
  13. CORDARONE [Suspect]
     Active Substance: AMIODARONE HYDROCHLORIDE
     Indication: ATRIAL FIBRILLATION
     Dosage: 200 MG, UNK (AT 4:00 PM)
     Route: 048
     Dates: start: 2008
  14. VALSARTAN-HYDROCHLOROTHIAZIDE [Suspect]
     Active Substance: HYDROCHLOROTHIAZIDE\VALSARTAN
     Dosage: 1 DF, 1X/DAY (HYDROCHLOROTHIAZIDE 12.5MG, VALSARTAN 320MG)
     Route: 048

REACTIONS (6)
  - Dizziness [Unknown]
  - Bradycardia [Unknown]
  - Fall [Unknown]
  - Presyncope [Unknown]
  - Transaminases increased [Recovering/Resolving]
  - Syncope [Unknown]
